FAERS Safety Report 6385524-2 (Version None)
Quarter: 2009Q4

REPORT INFORMATION
  Report Type: 
  Country: None (occurrence: None)
  Receive Date: 20091002
  Receipt Date: 20080910
  Transmission Date: 20100525
  Serious: No
  Sender: FDA-Public Use
  Company Number: US-ASTRAZENECA-2008UW18856

PATIENT
  Age: 84 Year
  Sex: Female
  Weight: 120.2 kg

DRUGS (4)
  1. ARIMIDEX [Suspect]
     Route: 048
  2. CALCIUM [Concomitant]
  3. ZOLOFT [Concomitant]
  4. THYROID PILL [Concomitant]

REACTIONS (1)
  - ILL-DEFINED DISORDER [None]
